FAERS Safety Report 5143921-7 (Version None)
Quarter: 2006Q4

REPORT INFORMATION
  Report Type: 
  Country: None (occurrence: None)
  Receive Date: 20061106
  Receipt Date: 20061027
  Transmission Date: 20070319
  Serious: Yes (Hospitalization)
  Sender: FDA-Public Use
  Company Number: 2006UW20675

PATIENT
  Age: 80 Year
  Sex: Female
  Weight: 61.2 kg

DRUGS (6)
  1. ATACAND [Suspect]
     Indication: HYPERTENSION
     Route: 048
  2. ATACAND [Interacting]
     Route: 048
  3. OTC MEDICATIONS [Interacting]
  4. LUTEIN [Concomitant]
  5. VITAMIN B COMPLEX CAP [Concomitant]
  6. CALCIUM [Concomitant]

REACTIONS (3)
  - BLOOD PRESSURE DECREASED [None]
  - BLOOD PRESSURE INCREASED [None]
  - DRUG INTERACTION [None]
